FAERS Safety Report 4436264-8 (Version None)
Quarter: 2004Q3

REPORT INFORMATION
  Report Type: 
  Country: None (occurrence: None)
  Receive Date: 20040830
  Receipt Date: 20040616
  Transmission Date: 20050211
  Serious: Yes (Hospitalization)
  Sender: FDA-Public Use
  Company Number: US-BRISTOL-MYERS SQUIBB COMPANY-12617072

PATIENT
  Age: 83 Year
  Sex: Female
  Weight: 66 kg

DRUGS (6)
  1. ERBITUX [Suspect]
     Indication: COLON CANCER
     Route: 042
     Dates: start: 20040614, end: 20040614
  2. BENADRYL [Concomitant]
     Indication: PREMEDICATION
     Route: 042
     Dates: start: 20040614, end: 20040614
  3. ALBUTEROL [Concomitant]
     Route: 055
  4. FLOVENT [Concomitant]
     Route: 055
  5. PRILOSEC [Concomitant]
  6. ZOLOFT [Concomitant]

REACTIONS (1)
  - ANAPHYLACTIC REACTION [None]
